FAERS Safety Report 7092609-4 (Version None)
Quarter: 2010Q4

REPORT INFORMATION
  Report Type: 
  Country: None (occurrence: None)
  Receive Date: 20101110
  Receipt Date: 20101102
  Transmission Date: 20110411
  Serious: Yes (Other)
  Sender: FDA-Public Use
  Company Number: US-US-EMD SERONO, INC.-239004K09USA

PATIENT
  Sex: Male
  Weight: 113 kg

DRUGS (2)
  1. REBIF [Suspect]
     Indication: MULTIPLE SCLEROSIS
     Route: 058
     Dates: start: 20030812
  2. STEROID [Suspect]
     Indication: STRABISMUS
     Route: 065
     Dates: end: 20080101

REACTIONS (1)
  - OSTEONECROSIS [None]
